FAERS Safety Report 4301921-0 (Version None)
Quarter: 2004Q1

REPORT INFORMATION
  Report Type: 
  Country: None (occurrence: None)
  Receive Date: 20040220
  Receipt Date: 20040210
  Transmission Date: 20041129
  Serious: Yes (Hospitalization)
  Sender: FDA-Public Use
  Company Number: 2004AP00655

PATIENT
  Age: 76 Year
  Sex: Female
  Weight: 43.3 kg

DRUGS (4)
  1. TENORMIN [Suspect]
     Indication: ANGINA PECTORIS
     Dosage: 50 MG DAILY
     Dates: start: 20010701
  2. TENORMIN [Suspect]
     Indication: TACHYARRHYTHMIA
     Dosage: 50 MG DAILY
     Dates: start: 20010701
  3. FLUVASTATIN [Concomitant]
  4. AMLODIPINE [Concomitant]

REACTIONS (5)
  - BLOOD TRIGLYCERIDES INCREASED [None]
  - DIABETES MELLITUS [None]
  - GLYCOSYLATED HAEMOGLOBIN INCREASED [None]
  - HYPERINSULINAEMIA [None]
  - INSULIN RESISTANCE [None]
